FAERS Safety Report 8045791 (Version 2)
Quarter: 2013Q2

REPORT INFORMATION
  Report Type: Report from Study
  Country: MX (occurrence: MX)
  Receive Date: 20110720
  Receipt Date: 20130522
  Transmission Date: 20140414
  Serious: No
  Sender: FDA-Public Use
  Company Number: PHHY2011MX63667

PATIENT
  Age: 16 Year
  Sex: Male

DRUGS (3)
  1. TRILEPTAL [Suspect]
     Indication: EPILEPSY
     Dosage: 3 DF, DAILY
     Route: 048
     Dates: start: 201101
  2. LAMICTAL [Concomitant]
     Dosage: UNK UKN, UNK
  3. NIMODIPINE [Concomitant]
     Dosage: UNK UKN, UNK

REACTIONS (3)
  - Mental disorder [Not Recovered/Not Resolved]
  - Convulsion [Not Recovered/Not Resolved]
  - Tremor [Not Recovered/Not Resolved]
